FAERS Safety Report 11582905 (Version 1)
Quarter: 2015Q4

REPORT INFORMATION
  Report Type: Spontaneous
  Country: US (occurrence: US)
  Receive Date: 20151001
  Receipt Date: 20151001
  Transmission Date: 20160304
  Serious: Yes (Other)
  Sender: FDA-Public Use
  Company Number: US-ROCHE-675131

PATIENT
  Age: 45 Year
  Sex: Female

DRUGS (9)
  1. PERCOCET [Concomitant]
     Active Substance: ACETAMINOPHEN\OXYCODONE HYDROCHLORIDE
     Indication: FIBROMYALGIA
     Route: 065
  2. VALIUM [Concomitant]
     Active Substance: DIAZEPAM
     Indication: DEPRESSION
     Route: 048
  3. RIBAVIRIN. [Suspect]
     Active Substance: RIBAVIRIN
     Indication: HEPATITIS C
     Dosage: DIVIDED DOSES
     Route: 048
  4. RIBAVIRIN. [Suspect]
     Active Substance: RIBAVIRIN
     Route: 048
  5. NEURONTIN [Concomitant]
     Active Substance: GABAPENTIN
     Route: 048
  6. SEROQUEL [Concomitant]
     Active Substance: QUETIAPINE FUMARATE
     Indication: DEPRESSION
     Dosage: DAILY
     Route: 048
  7. PRISTIQ EXTENDED RELEASE [Concomitant]
     Active Substance: DESVENLAFAXINE SUCCINATE
     Indication: DEPRESSION
     Route: 048
  8. PEGASYS [Suspect]
     Active Substance: PEGINTERFERON ALFA-2A
     Indication: HEPATITIS C
     Dosage: FORM: PRE-FILLED SYRINGE
     Route: 058
  9. PEGASYS [Suspect]
     Active Substance: PEGINTERFERON ALFA-2A
     Route: 058

REACTIONS (11)
  - Alanine aminotransferase increased [Unknown]
  - Arthralgia [Recovered/Resolved]
  - Hair growth abnormal [Unknown]
  - Depression [Not Recovered/Not Resolved]
  - Chills [Unknown]
  - Anxiety [Recovered/Resolved]
  - Insomnia [Recovered/Resolved]
  - Pain of skin [Unknown]
  - Palpitations [Unknown]
  - Aspartate aminotransferase increased [Unknown]
  - Fatigue [Recovered/Resolved]

NARRATIVE: CASE EVENT DATE: 200912
